FAERS Safety Report 8251658-0 (Version None)
Quarter: 2012Q2

REPORT INFORMATION
  Report Type: 
  Country: None (occurrence: None)
  Receive Date: 20120402
  Receipt Date: 20120111
  Transmission Date: 20120825
  Serious: No
  Sender: FDA-Public Use
  Company Number: US-ABBOTT-12P-163-0893227-00

PATIENT
  Sex: Male
  Weight: 104.42 kg

DRUGS (5)
  1. VYTORIN [Concomitant]
     Indication: BLOOD CHOLESTEROL
  2. MULTI-VITAMIN [Concomitant]
     Indication: VITAMIN SUPPLEMENTATION
  3. ANDROGEL [Suspect]
     Indication: BLOOD TESTOSTERONE DECREASED
     Dosage: 2 PUMPS PER DAY
     Dates: start: 20111001, end: 20111201
  4. ANDROGEL [Suspect]
     Dosage: 4 PUMPS PER DAY
     Dates: start: 20120111
  5. ALLOPURINOL [Concomitant]
     Indication: GOUT

REACTIONS (2)
  - BLOOD TESTOSTERONE DECREASED [None]
  - DRUG INEFFECTIVE [None]
